FAERS Safety Report 18952105 (Version 8)
Quarter: 2022Q3

REPORT INFORMATION
  Report Type: Spontaneous
  Country: GB (occurrence: GB)
  Receive Date: 20210301
  Receipt Date: 20220727
  Transmission Date: 20221027
  Serious: Yes (Hospitalization, Other)
  Sender: FDA-Public Use
  Company Number: GB-TAKEDA-2021TUS010890

PATIENT
  Age: 78 Year
  Sex: Female

DRUGS (3)
  1. ENTYVIO [Suspect]
     Active Substance: VEDOLIZUMAB
     Indication: Colitis ulcerative
     Dosage: 300 MILLIGRAM
     Route: 065
  2. ENTYVIO [Suspect]
     Active Substance: VEDOLIZUMAB
     Dosage: 300 MILLIGRAM
     Route: 042
  3. ENTYVIO [Suspect]
     Active Substance: VEDOLIZUMAB
     Dosage: 300 MILLIGRAM
     Route: 042
     Dates: start: 20210518

REACTIONS (9)
  - Procedural pain [Unknown]
  - Back pain [Unknown]
  - Thrombosis [Unknown]
  - Spinal compression fracture [Unknown]
  - Blood pressure decreased [Unknown]
  - Diarrhoea [Unknown]
  - Rhinorrhoea [Unknown]
  - Herpes zoster [Unknown]
  - Urinary tract infection [Unknown]
